FAERS Safety Report 8611524-5 (Version None)
Quarter: 2012Q3

REPORT INFORMATION
  Report Type: 
  Country: None (occurrence: None)
  Receive Date: 20120809
  Receipt Date: 20120727
  Transmission Date: 20120928
  Serious: Yes (Other)
  Sender: FDA-Public Use
  Company Number: 1206-324

PATIENT
  Age: 83 Year
  Sex: Female

DRUGS (4)
  1. VIGAMOX [Concomitant]
  2. FISH OIL (FISH OIL) [Concomitant]
  3. EYLEA [Suspect]
     Indication: AGE-RELATED MACULAR DEGENERATION
     Dosage: 2 MG, 1 IN 1 M, INTRAVITREAL
     Dates: start: 20120124, end: 20120510
  4. GARLIC (ALLIUM SATIVUM) [Concomitant]

REACTIONS (2)
  - VISUAL ACUITY REDUCED [None]
  - RETINAL DETACHMENT [None]
